FAERS Safety Report 18249612 (Version 1)
Quarter: 2020Q3

REPORT INFORMATION
  Report Type: Spontaneous
  Country: ES (occurrence: ES)
  Receive Date: 20200909
  Receipt Date: 20200909
  Transmission Date: 20201103
  Serious: Yes (Hospitalization)
  Sender: FDA-Public Use
  Company Number: ES-TEVA-2020-ES-1824257

PATIENT
  Age: 100 Year
  Sex: Female

DRUGS (1)
  1. ENALAPRIL/HIDROCLOROTIAZIDA [Suspect]
     Active Substance: ENALAPRIL\HYDROCHLOROTHIAZIDE
     Indication: HYPERTENSION
     Dosage: 1 DOSAGE FORMS DAILY; ENALAPRIL / HCTZ 20?12.5MG 1 TAB AT BREAKFAST
     Route: 048
     Dates: start: 20140117, end: 20200724

REACTIONS (2)
  - Condition aggravated [Recovered/Resolved]
  - Acute kidney injury [Recovered/Resolved]

NARRATIVE: CASE EVENT DATE: 20200725
